FAERS Safety Report 9435745 (Version 1)
Quarter: 2013Q3

REPORT INFORMATION
  Report Type: Spontaneous
  Country: US (occurrence: None)
  Receive Date: 20130801
  Receipt Date: 20130801
  Transmission Date: 20140515
  Serious: Yes (Hospitalization)
  Sender: FDA-Public Use
  Company Number: None

PATIENT
  Age: 76 None
  Sex: Male
  Weight: 101.6 kg

DRUGS (1)
  1. DAPTOMYCIN [Suspect]
     Indication: ENTEROCOCCAL SEPSIS
     Route: 042
     Dates: start: 20130719, end: 20130730

REACTIONS (4)
  - Chest pain [None]
  - Musculoskeletal pain [None]
  - Blood creatine phosphokinase increased [None]
  - Myalgia [None]
